FAERS Safety Report 6853774-4 (Version None)
Quarter: 2010Q3

REPORT INFORMATION
  Report Type: 
  Country: None (occurrence: None)
  Receive Date: 20100717
  Receipt Date: 20071214
  Transmission Date: 20110219
  Serious: Yes (Hospitalization, Other)
  Sender: FDA-Public Use
  Company Number: US-PFIZER INC-2007106701

PATIENT
  Sex: Male
  Weight: 74.8 kg

DRUGS (6)
  1. CHANTIX [Suspect]
     Indication: SMOKING CESSATION THERAPY
     Dates: start: 20071001, end: 20071203
  2. LOTREL [Concomitant]
  3. BENICAR [Concomitant]
  4. VITAMINS [Concomitant]
  5. ACETYLSALICYLIC ACID [Concomitant]
  6. GLUCOSAMINE W/CHONDROITIN SULFATES [Concomitant]

REACTIONS (2)
  - CHEST PAIN [None]
  - PALPITATIONS [None]
